FAERS Safety Report 7294639-6 (Version None)
Quarter: 2011Q1

REPORT INFORMATION
  Report Type: 
  Country: None (occurrence: None)
  Receive Date: 20110204
  Receipt Date: 20110127
  Transmission Date: 20110831
  Serious: Yes (Hospitalization)
  Sender: FDA-Public Use
  Company Number: UTC-004868

PATIENT
  Age: 71 Year
  Sex: Female
  Weight: 81.6 kg

DRUGS (1)
  1. TYVASO [Suspect]
     Dosage: 192 MCG (48 MCG, 4 IN 1 D) INHALATION
     Route: 055
     Dates: start: 20100602, end: 20101230

REACTIONS (2)
  - FALL [None]
  - ABASIA [None]
